FAERS Safety Report 12763207 (Version 2)
Quarter: 2016Q4

REPORT INFORMATION
  Report Type: Report from Study
  Country: ZA (occurrence: ZA)
  Receive Date: 20160920
  Receipt Date: 20161014
  Transmission Date: 20170207
  Serious: Yes (Other)
  Sender: FDA-Public Use
  Company Number: ZA-BAYER-2016-104637

PATIENT
  Age: 48 Year
  Sex: Female

DRUGS (1)
  1. BETAFERON [Suspect]
     Active Substance: INTERFERON BETA-1B
     Indication: MULTIPLE SCLEROSIS
     Dosage: 8 MIU, QOD
     Route: 058
     Dates: start: 20100804

REACTIONS (7)
  - Injection site swelling [Recovering/Resolving]
  - Skin discolouration [Recovering/Resolving]
  - Cellulitis [Recovered/Resolved]
  - Injection site reaction [Recovering/Resolving]
  - Hypoaesthesia [Recovering/Resolving]
  - Injection site induration [Recovering/Resolving]
  - Injection site pain [Recovering/Resolving]

NARRATIVE: CASE EVENT DATE: 201605
